FAERS Safety Report 20020544 (Version 3)
Quarter: 2021Q4

REPORT INFORMATION
  Report Type: Spontaneous
  Country: JP (occurrence: JP)
  Receive Date: 20211101
  Receipt Date: 20211207
  Transmission Date: 20220303
  Serious: Yes (Death, Other)
  Sender: FDA-Public Use
  Company Number: JP-NOVARTISPH-NVSJ2021JP017429

PATIENT
  Age: 82 Year
  Sex: Female

DRUGS (2)
  1. ELTROMBOPAG OLAMINE [Suspect]
     Active Substance: ELTROMBOPAG OLAMINE
     Indication: Aplastic anaemia
     Dosage: 100 MG
     Route: 048
     Dates: start: 202105, end: 202110
  2. NEORAL [Suspect]
     Active Substance: CYCLOSPORINE
     Indication: Aplastic anaemia
     Dosage: 20 MG
     Route: 048
     Dates: start: 202105, end: 202110

REACTIONS (4)
  - Renal impairment [Fatal]
  - Therapeutic product effect incomplete [Fatal]
  - Aplastic anaemia [Fatal]
  - Condition aggravated [Fatal]
